FAERS Safety Report 15998979 (Version 2)
Quarter: 2019Q1

REPORT INFORMATION
  Report Type: Spontaneous
  Country: US (occurrence: US)
  Receive Date: 20190223
  Receipt Date: 20190313
  Transmission Date: 20190418
  Serious: Yes (Death)
  Sender: FDA-Public Use
  Company Number: PHEH2019US007939

PATIENT
  Sex: Male
  Weight: 47 kg

DRUGS (3)
  1. CLOFAZIMINE [Suspect]
     Active Substance: CLOFAZIMINE
     Indication: PNEUMONIA
  2. CLOFAZIMINE [Suspect]
     Active Substance: CLOFAZIMINE
     Indication: MYCOBACTERIUM AVIUM COMPLEX INFECTION
  3. CLOFAZIMINE [Suspect]
     Active Substance: CLOFAZIMINE
     Indication: PATHOGEN RESISTANCE
     Dosage: 100 MG, QD (2-50 MG)
     Route: 048
     Dates: start: 20190120, end: 20190202

REACTIONS (2)
  - Respiratory failure [Fatal]
  - Pneumonia [Fatal]
